FAERS Safety Report 4652565-2 (Version None)
Quarter: 2005Q2

REPORT INFORMATION
  Report Type: 
  Country: None (occurrence: None)
  Receive Date: 20050502
  Receipt Date: 20050422
  Transmission Date: 20051028
  Serious: Yes (Hospitalization)
  Sender: FDA-Public Use
  Company Number: 200511067GDS

PATIENT
  Age: 75 Year
  Sex: Female

DRUGS (3)
  1. ASPIRIN [Suspect]
     Dosage: 100 MG, QD, ORAL
     Route: 048
  2. GINKGO BILOBA [Suspect]
     Dates: start: 20050322, end: 20050401
  3. SOTALOL HCL [Concomitant]

REACTIONS (2)
  - PETECHIAE [None]
  - THROMBOCYTOPENIC PURPURA [None]
